FAERS Safety Report 4317738-7 (Version None)
Quarter: 2004Q1

REPORT INFORMATION
  Report Type: 
  Country: None (occurrence: None)
  Receive Date: 20040315
  Receipt Date: 20040107
  Transmission Date: 20041129
  Serious: Yes (Death)
  Sender: FDA-Public Use
  Company Number: PHBS2004CA00629

PATIENT
  Age: 58 Year
  Sex: Female

DRUGS (2)
  1. CYCLOSPORINE [Suspect]
     Indication: LIVER TRANSPLANT
     Dosage: 200 MG/D
     Route: 065
  2. MYCOPHENOLATE MOFETIL [Suspect]
     Indication: LIVER TRANSPLANT
     Dosage: 1.5 G/D
     Route: 065

REACTIONS (15)
  - BRAIN OEDEMA [None]
  - CHILLS [None]
  - COMA [None]
  - CONFUSIONAL STATE [None]
  - CSF TEST ABNORMAL [None]
  - ENCEPHALITIS [None]
  - ENCEPHALITIS VIRAL [None]
  - HEADACHE [None]
  - MYOCLONUS [None]
  - NECROSIS [None]
  - NERVOUS SYSTEM DISORDER [None]
  - NUCLEAR MAGNETIC RESONANCE IMAGING ABNORMAL [None]
  - PNEUMONIA BACTERIAL [None]
  - PYREXIA [None]
  - WEST NILE VIRAL INFECTION [None]
